FAERS Safety Report 23398651 (Version 5)
Quarter: 2024Q2

REPORT INFORMATION
  Report Type: Spontaneous
  Country: DE (occurrence: DE)
  Receive Date: 20240112
  Receipt Date: 20240429
  Transmission Date: 20240715
  Serious: Yes (Other)
  Sender: FDA-Public Use
  Company Number: DE-TAKEDA-2023TUS080679

PATIENT
  Age: 20 Year

DRUGS (7)
  1. BUDESONIDE [Suspect]
     Active Substance: BUDESONIDE
     Indication: Product used for unknown indication
     Dosage: UNK
     Route: 065
  2. ENTYVIO [Suspect]
     Active Substance: VEDOLIZUMAB
     Indication: Colitis ulcerative
     Dosage: UNK
     Route: 065
     Dates: start: 2021
  3. HERBALS [Suspect]
     Active Substance: HERBALS
     Indication: Colitis ulcerative
     Dosage: UNK
     Route: 065
  4. MESALAMINE [Suspect]
     Active Substance: MESALAMINE
     Indication: Colitis ulcerative
     Dosage: UNK
     Route: 065
     Dates: start: 2019
  5. CORTISONE [Suspect]
     Active Substance: CORTISONE
     Indication: Product used for unknown indication
     Dosage: UNK
     Route: 065
  6. OMEPRAZOLE [Concomitant]
     Active Substance: OMEPRAZOLE
     Dosage: UNK
     Route: 065
  7. TILIDINE [Concomitant]
     Active Substance: TILIDINE
     Indication: Pain
     Dosage: UNK
     Route: 065

REACTIONS (7)
  - Colitis ulcerative [Unknown]
  - Back pain [Unknown]
  - Infection [Unknown]
  - Nausea [Unknown]
  - Fatigue [Unknown]
  - Balance disorder [Unknown]
  - Drug ineffective [Unknown]
